FAERS Safety Report 15746576 (Version 1)
Quarter: 2018Q4

REPORT INFORMATION
  Report Type: Spontaneous
  Country: US (occurrence: US)
  Receive Date: 20181220
  Receipt Date: 20181220
  Transmission Date: 20190205
  Serious: No
  Sender: FDA-Public Use
  Company Number: US-PRINSTON PHARMACEUTICAL INC.-2018PRN01483

PATIENT
  Sex: Male

DRUGS (1)
  1. RISPERIDONE. [Suspect]
     Active Substance: RISPERIDONE

REACTIONS (7)
  - Weight increased [Unknown]
  - Cough [Unknown]
  - Tremor [Unknown]
  - Breast tenderness [Unknown]
  - Pruritus [Unknown]
  - Myalgia [Unknown]
  - Muscle spasms [Unknown]
